FAERS Safety Report 15197034 (Version 1)
Quarter: 2018Q3

REPORT INFORMATION
  Report Type: Spontaneous
  Country: IT (occurrence: IT)
  Receive Date: 20180725
  Receipt Date: 20180725
  Transmission Date: 20181010
  Serious: Yes (Hospitalization)
  Sender: FDA-Public Use
  Company Number: IT-TEVA-2018-IT-930727

PATIENT
  Age: 70 Year
  Sex: Female
  Weight: 75 kg

DRUGS (2)
  1. CISPLATIN. [Suspect]
     Active Substance: CISPLATIN
     Indication: LARGE CELL LUNG CANCER
     Route: 042
     Dates: start: 20180523, end: 20180525
  2. ETOPOSIDE. [Concomitant]
     Active Substance: ETOPOSIDE
     Indication: LARGE CELL LUNG CANCER
     Route: 042
     Dates: start: 20180523, end: 20180525

REACTIONS (1)
  - Acute kidney injury [Recovering/Resolving]

NARRATIVE: CASE EVENT DATE: 20180612
